FAERS Safety Report 12866002 (Version 3)
Quarter: 2017Q1

REPORT INFORMATION
  Report Type: Spontaneous
  Country: DE (occurrence: DE)
  Receive Date: 20161020
  Receipt Date: 20170104
  Transmission Date: 20170428
  Serious: Yes (Hospitalization, Other)
  Sender: FDA-Public Use
  Company Number: DE-PFIZER INC-2016486058

PATIENT
  Sex: Female

DRUGS (10)
  1. TIKLYD [Suspect]
     Active Substance: TICLOPIDINE HYDROCHLORIDE
     Dosage: 250, 1X/DAY
     Dates: end: 201409
  2. PEPSINWEIN [Concomitant]
     Dosage: 10 ML, UNK (3X)
  3. ATACAND [Suspect]
     Active Substance: CANDESARTAN CILEXETIL
     Dosage: 16, 1/2-0-0
     Dates: end: 201409
  4. VALORON /00205402/ [Concomitant]
     Active Substance: TILIDINE HYDROCHLORIDE
     Dosage: 100/8, 2X/DAY (1-0-1)
     Dates: start: 2001, end: 2014
  5. VITAMIN B COMPLEX [Concomitant]
     Active Substance: CYANOCOBALAMIN\DEXPANTHENOL\NIACINAMIDE\PYRIDOXINE HYDROCHLORIDE\RIBOFLAVIN 5^-PHOSPHATE SODIUM\THIAMINE HYDROCHLORIDE\VITAMIN B COMPLEX
     Dosage: UNK, 3X/DAY (1-1-1)
  6. STANGYL /00051802/ [Concomitant]
     Active Substance: TRIMIPRAMINE MALEATE
     Dosage: UNK, (0-0-15)
  7. VITAMIN B12 [Concomitant]
     Active Substance: CYANOCOBALAMIN
     Dosage: UNK, 1 PER MONTH
  8. SORTIS [Suspect]
     Active Substance: ATORVASTATIN
     Dosage: 20, 1X/DAY (0-0-1)
     Dates: end: 201409
  9. QUANTALAN [Concomitant]
     Active Substance: CHOLESTYRAMINE
     Dosage: UNK, 2X/DAY (1-0-1)
  10. PANTOZOL [Concomitant]
     Active Substance: PANTOPRAZOLE SODIUM
     Dosage: 40, 2X/DAY (1-0-1)

REACTIONS (16)
  - Reflux gastritis [Unknown]
  - Cachexia [Unknown]
  - Diverticulum intestinal [Unknown]
  - Disease recurrence [Unknown]
  - Pain in extremity [Not Recovered/Not Resolved]
  - Headache [Unknown]
  - Weight decreased [Recovering/Resolving]
  - Renal impairment [Unknown]
  - Hiatus hernia [Unknown]
  - Carotid artery stenosis [Unknown]
  - Pruritus [Not Recovered/Not Resolved]
  - Gastritis [Unknown]
  - Sleep disorder [Not Recovered/Not Resolved]
  - Hyperchlorhydria [Unknown]
  - Dizziness [Unknown]
  - Fatigue [Unknown]
